FAERS Safety Report 12860032 (Version 1)
Quarter: 2016Q4

REPORT INFORMATION
  Report Type: Spontaneous
  Country: US (occurrence: US)
  Receive Date: 20161016
  Receipt Date: 20161016
  Transmission Date: 20170207
  Serious: No
  Sender: FDA-Public Use
  Company Number: None

PATIENT
  Age: 78 Year
  Sex: Male

DRUGS (1)
  1. OMEPRAZOLE AND SODIUM BICARB PACKETS PAR PHARMACEUTICAL [Suspect]
     Active Substance: OMEPRAZOLE\SODIUM BICARBONATE
     Indication: PRODUCT USED FOR UNKNOWN INDICATION
     Route: 048

REACTIONS (3)
  - Dyspepsia [None]
  - Dysphagia [None]
  - Product substitution issue [None]

NARRATIVE: CASE EVENT DATE: 20161010
